FAERS Safety Report 9213623 (Version 3)
Quarter: 2013Q3

REPORT INFORMATION
  Report Type: Report from Study
  Country: FR (occurrence: FR)
  Receive Date: 20130405
  Receipt Date: 20130701
  Transmission Date: 20140515
  Serious: Yes (Hospitalization)
  Sender: FDA-Public Use
  Company Number: FR-ASTELLAS-2013EU003103

PATIENT
  Age: 28 Year
  Sex: Male

DRUGS (3)
  1. PROGRAF [Suspect]
     Indication: IMMUNOSUPPRESSION
     Dosage: UNK
     Route: 065
     Dates: start: 20130303, end: 20130310
  2. CELLCEPT                           /01275102/ [Concomitant]
     Indication: IMMUNOSUPPRESSION
     Dosage: UNK
     Route: 065
     Dates: start: 20130303
  3. SOLUPRED                           /00016201/ [Concomitant]
     Indication: IMMUNOSUPPRESSION
     Dosage: UNK
     Route: 065
     Dates: start: 20130304

REACTIONS (1)
  - Focal segmental glomerulosclerosis [Recovered/Resolved]
